FAERS Safety Report 17458787 (Version 1)
Quarter: 2020Q1

REPORT INFORMATION
  Report Type: Spontaneous
  Country: US (occurrence: US)
  Receive Date: 20200225
  Receipt Date: 20200225
  Transmission Date: 20200409
  Serious: No
  Sender: FDA-Public Use
  Company Number: US-IGSA-SR10008231

PATIENT
  Age: 75 Year
  Sex: Female
  Weight: 93 kg

DRUGS (18)
  1. PROLASTIN-C LIQUID [Suspect]
     Active Substance: .ALPHA.1-PROTEINASE INHIBITOR HUMAN
     Indication: ALPHA-1 ANTI-TRYPSIN DEFICIENCY
     Dosage: 5580 MG, Q.WK.
     Route: 042
     Dates: start: 20190417, end: 20190417
  2. BUMEX [Concomitant]
     Active Substance: BUMETANIDE
     Dosage: 0.2 MG, QD
     Route: 048
  3. SPIRIVA [Concomitant]
     Active Substance: TIOTROPIUM BROMIDE MONOHYDRATE
     Dosage: UNK, QD
     Route: 055
  4. OXYGEN. [Concomitant]
     Active Substance: OXYGEN
     Dosage: UNK
     Route: 050
  5. CALCIUM CITRATE WITH VITAMIN D [Concomitant]
     Active Substance: CALCIUM CITRATE\VITAMIN D
     Dosage: 600 MG, QD
     Route: 048
  6. PROLASTIN-C LIQUID [Suspect]
     Active Substance: .ALPHA.1-PROTEINASE INHIBITOR HUMAN
     Dosage: 5580 MG, Q.WK.
     Route: 042
     Dates: start: 20190313
  7. FISH OIL [Concomitant]
     Active Substance: FISH OIL
     Dosage: 1000 MG, BID
     Route: 048
  8. MULTIVITAMIN                       /00097801/ [Concomitant]
     Active Substance: VITAMINS
     Dosage: UNK UNK, QD
     Route: 048
  9. POTASSIUM CHLORIDE. [Concomitant]
     Active Substance: POTASSIUM CHLORIDE
     Dosage: 25 MEQ, QD
     Route: 048
  10. LISINOPRIL. [Concomitant]
     Active Substance: LISINOPRIL
     Dosage: 5 MG, QD
     Route: 048
  11. ADVAIR HFA [Concomitant]
     Active Substance: FLUTICASONE PROPIONATE\SALMETEROL XINAFOATE
     Dosage: UNK, BID
     Route: 055
  12. XOPENEX [Concomitant]
     Active Substance: LEVALBUTEROL HYDROCHLORIDE
     Dosage: 1.25 MG, QD
     Route: 048
  13. SLO-MAG [Concomitant]
     Dosage: UNK, BID
     Route: 048
  14. GLUCOSAMINE [Concomitant]
     Active Substance: GLUCOSAMINE
     Dosage: 1500 MG, QD
     Route: 048
  15. CARDIZEM [Concomitant]
     Active Substance: DILTIAZEM HYDROCHLORIDE
     Dosage: 360 MG, QD
     Route: 048
  16. TIKOSYN [Concomitant]
     Active Substance: DOFETILIDE
     Dosage: 0.25 MG, BID
     Route: 048
  17. TURMERIC                           /01079602/ [Concomitant]
     Active Substance: HERBALS\TURMERIC
     Dosage: UNK, QD
     Route: 048
  18. BIOTIN [Concomitant]
     Active Substance: BIOTIN
     Dosage: 5000 ?G, QD
     Route: 048

REACTIONS (1)
  - Pruritus [Recovered/Resolved]

NARRATIVE: CASE EVENT DATE: 20190417
